FAERS Safety Report 9421038 (Version 2)
Quarter: 2016Q2

REPORT INFORMATION
  Report Type: Spontaneous
  Country: US (occurrence: US)
  Receive Date: 20130725
  Receipt Date: 20160527
  Transmission Date: 20160815
  Serious: Yes (Other)
  Sender: FDA-Public Use
  Company Number: US-009507513-1307USA011851

PATIENT
  Sex: Female

DRUGS (14)
  1. COZAAR [Suspect]
     Active Substance: LOSARTAN POTASSIUM
     Dosage: 50 MG, QD
     Route: 048
  2. COUMADIN [Concomitant]
     Active Substance: WARFARIN SODIUM
  3. BENADRYL [Concomitant]
     Active Substance: DIPHENHYDRAMINE HYDROCHLORIDE
  4. PREVACID [Concomitant]
     Active Substance: LANSOPRAZOLE
  5. TEMARIL [Concomitant]
     Active Substance: TRIMEPRAZINE TARTRATE
  6. LIDOCAINE. [Concomitant]
     Active Substance: LIDOCAINE
  7. LEVAQUIN [Concomitant]
     Active Substance: LEVOFLOXACIN
  8. ASPIRIN. [Concomitant]
     Active Substance: ASPIRIN
  9. ACCUPRIL [Concomitant]
     Active Substance: QUINAPRIL HYDROCHLORIDE
  10. IMDUR [Suspect]
     Active Substance: ISOSORBIDE MONONITRATE
     Indication: HYPERTENSION
     Dosage: 60 MG, QD
     Route: 048
  11. GLUCOTROL [Concomitant]
     Active Substance: GLIPIZIDE
  12. ACHROMYCIN V [Concomitant]
     Active Substance: TETRACYCLINE HYDROCHLORIDE
  13. CEFTAZIDIME. [Concomitant]
     Active Substance: CEFTAZIDIME
  14. IODINE. [Concomitant]
     Active Substance: IODINE

REACTIONS (10)
  - Asthenia [Unknown]
  - Loss of consciousness [Unknown]
  - Gait disturbance [Unknown]
  - Haemorrhage [Unknown]
  - Overdose [Unknown]
  - Fall [Not Recovered/Not Resolved]
  - Lip swelling [Unknown]
  - Paralysis [Unknown]
  - Adverse event [Not Recovered/Not Resolved]
  - Blood pressure decreased [Unknown]
